FAERS Safety Report 15977640 (Version 3)
Quarter: 2019Q2

REPORT INFORMATION
  Report Type: Report from Study
  Country: US (occurrence: US)
  Receive Date: 20190218
  Receipt Date: 20190425
  Transmission Date: 20190711
  Serious: Yes (Other)
  Sender: FDA-Public Use
  Company Number: PHEH2019US006954

PATIENT
  Sex: Female

DRUGS (2)
  1. LATANOPROST. [Suspect]
     Active Substance: LATANOPROST
     Indication: PRODUCT USED FOR UNKNOWN INDICATION
     Route: 065
  2. TRAVATAN Z [Suspect]
     Active Substance: TRAVOPROST
     Indication: GLAUCOMA
     Dosage: 1 GTT, QHS, BOTH EYES
     Route: 065
     Dates: start: 20180807, end: 20190213

REACTIONS (5)
  - Colon cancer [Recovering/Resolving]
  - Ocular hypertension [Unknown]
  - Sleep apnoea syndrome [Unknown]
  - Syncope [Unknown]
  - Systemic lupus erythematosus [Unknown]
